FAERS Safety Report 5629315-6 (Version None)
Quarter: 2008Q1

REPORT INFORMATION
  Report Type: 
  Country: None (occurrence: None)
  Receive Date: 20080122
  Receipt Date: 20080122
  Transmission Date: 20080703
  Serious: Yes (Other)
  Sender: FDA-Public Use
  Company Number: None

PATIENT
  Age: 28 Year
  Sex: Female
  Weight: 79.8331 kg

DRUGS (1)
  1. IMPLANON [Suspect]
     Indication: CONTRACEPTION
     Dosage: ETONONGEATOROL Q 3 YEARS SUBCUTANEOUS IMPLANT
     Route: 058
     Dates: start: 20070220

REACTIONS (1)
  - PREGNANCY WITH IMPLANT CONTRACEPTIVE [None]
